FAERS Safety Report 9536131 (Version 1)
Quarter: 2013Q2

REPORT INFORMATION
  Report Type: Spontaneous
  Country: US (occurrence: None)
  Receive Date: 20130423
  Receipt Date: 20130423
  Transmission Date: 20140414
  Serious: Yes (Hospitalization)
  Sender: FDA-Public Use
  Company Number: E2B_0000573

PATIENT
  Age: 71 Year
  Sex: Male
  Weight: 104.78 kg

DRUGS (2)
  1. LEVOFLOXACIN [Suspect]
     Indication: BACTERIAL INFECTION
     Dosage: UNKNOWN (UNKNOWN, UNKNOWN) , ORAL
     Dates: start: 201205, end: 201205
  2. POTASSIUM (UNKNOWN, UNKNOWN), UNKNOWN [Concomitant]

REACTIONS (5)
  - Muscular weakness [None]
  - Constipation [None]
  - Nausea [None]
  - Tinnitus [None]
  - Adverse event [None]
